FAERS Safety Report 21920387 (Version 1)
Quarter: 2023Q1

REPORT INFORMATION
  Report Type: Spontaneous
  Country: US (occurrence: None)
  Receive Date: 20230126
  Receipt Date: 20230126
  Transmission Date: 20230417
  Serious: No
  Sender: FDA-Public Use
  Company Number: None

PATIENT
  Age: 69 Year
  Sex: Female
  Weight: 73.12 kg

DRUGS (8)
  1. KISQALI [Suspect]
     Active Substance: RIBOCICLIB
     Indication: Breast cancer female
     Dosage: OTHER FREQUENCY : 21D ON 7D OFF;?
     Route: 048
     Dates: start: 20221104, end: 20230126
  2. ATENOLOL [Concomitant]
  3. DILTIAZEM [Concomitant]
  4. ELIQUIS [Concomitant]
  5. FERMA [Concomitant]
  6. PREMARIN [Concomitant]
  7. ROSUVASTATIN [Concomitant]
  8. SPIRONOLACTONE [Concomitant]

REACTIONS (1)
  - White blood cell count decreased [None]
